FAERS Safety Report 24011411 (Version 1)
Quarter: 2024Q2

REPORT INFORMATION
  Report Type: Spontaneous
  Country: IL (occurrence: IL)
  Receive Date: 20240625
  Receipt Date: 20240625
  Transmission Date: 20240716
  Serious: Yes (Other)
  Sender: FDA-Public Use
  Company Number: IL-002147023-NVSC2024IL130503

PATIENT
  Age: 73 Year
  Sex: Female

DRUGS (7)
  1. FEMARA [Suspect]
     Active Substance: LETROZOLE
     Indication: Breast cancer
     Dosage: UNK
     Route: 065
  2. RIBOCICLIB [Suspect]
     Active Substance: RIBOCICLIB
     Indication: Product used for unknown indication
     Dosage: UNK
     Route: 065
  3. ALPELISIB [Suspect]
     Active Substance: ALPELISIB
     Indication: PIK3CA-activated mutation
     Dosage: UNK
     Route: 065
  4. ALPELISIB [Suspect]
     Active Substance: ALPELISIB
     Indication: Breast cancer
  5. FASLODEX [Suspect]
     Active Substance: FULVESTRANT
     Indication: Product used for unknown indication
     Dosage: UNK
     Route: 065
  6. FEXOFENADINE [Concomitant]
     Active Substance: FEXOFENADINE HYDROCHLORIDE
     Indication: Product used for unknown indication
     Dosage: UNK
     Route: 065
  7. ELACESTRANT [Concomitant]
     Active Substance: ELACESTRANT
     Indication: Product used for unknown indication
     Dosage: UNK
     Route: 065

REACTIONS (9)
  - Metastases to neck [Recovered/Resolved]
  - Swelling [Recovered/Resolved]
  - Neck pain [Recovered/Resolved]
  - Supraclavicular fossa pain [Unknown]
  - Pruritus [Recovered/Resolved]
  - Fatigue [Unknown]
  - Disease progression [Unknown]
  - Nodule [Unknown]
  - Back pain [Unknown]

NARRATIVE: CASE EVENT DATE: 20240501
